FAERS Safety Report 10744906 (Version 1)
Quarter: 2015Q1

REPORT INFORMATION
  Report Type: Spontaneous
  Country: US (occurrence: None)
  Receive Date: 20150120
  Receipt Date: 20150120
  Transmission Date: 20150721
  Serious: No
  Sender: FDA-Public Use
  Company Number: AEGR000872

PATIENT
  Age: 66 Year
  Sex: Female
  Weight: 95.2 kg

DRUGS (2)
  1. JUXTAPID [Suspect]
     Active Substance: LOMITAPIDE MESYLATE
     Indication: PRODUCT USED FOR UNKNOWN INDICATION
     Route: 048
     Dates: start: 20141028
  2. LOVASTATIN. [Concomitant]
     Active Substance: LOVASTATIN

REACTIONS (8)
  - Frequent bowel movements [None]
  - Product used for unknown indication [None]
  - Flatulence [None]
  - Abdominal pain upper [None]
  - Nausea [None]
  - Weight decreased [None]
  - Arthritis [None]
  - Diarrhoea [None]

NARRATIVE: CASE EVENT DATE: 201410
